FAERS Safety Report 6196536-6 (Version None)
Quarter: 2009Q2

REPORT INFORMATION
  Report Type: 
  Country: None (occurrence: None)
  Receive Date: 20090520
  Receipt Date: 20090331
  Transmission Date: 20091009
  Serious: No
  Sender: FDA-Public Use
  Company Number: US-ABBOTT-09P-163-0565938-00

PATIENT
  Sex: Female
  Weight: 115.77 kg

DRUGS (6)
  1. ZEMPLAR [Suspect]
     Indication: HYPOPARATHYROIDISM
     Route: 042
     Dates: start: 20090316
  2. SENSIPAR [Concomitant]
     Indication: HYPERPARATHYROIDISM
     Route: 050
  3. GLUCOTROL [Concomitant]
     Indication: DIABETES MELLITUS
     Route: 048
  4. BYETTA [Concomitant]
     Indication: DIABETES MELLITUS
     Route: 048
  5. CRESTOR [Concomitant]
     Indication: BLOOD CHOLESTEROL INCREASED
     Route: 048
  6. RENAGEL [Concomitant]
     Indication: BLOOD PHOSPHORUS INCREASED
     Route: 048

REACTIONS (1)
  - INJECTION SITE NODULE [None]
